FAERS Safety Report 9464083 (Version 2)
Quarter: 2013Q3

REPORT INFORMATION
  Report Type: Spontaneous
  Country: CA (occurrence: CA)
  Receive Date: 20130819
  Receipt Date: 20130819
  Transmission Date: 20140515
  Serious: Yes (Congenital Anomaly)
  Sender: FDA-Public Use
  Company Number: CA-RANBAXY-2006US-01680

PATIENT
  Age: 9 Month
  Sex: Male
  Weight: 8.65 kg

DRUGS (7)
  1. FLUCONAZOLE [Suspect]
     Indication: VULVOVAGINAL CANDIDIASIS
     Dosage: 800 MG/DAY
     Route: 064
  2. FLUCONAZOLE [Suspect]
     Indication: VULVOVAGINAL CANDIDIASIS
     Route: 064
  3. EFAVIRENZ [Concomitant]
     Indication: HIV INFECTION
     Dosage: 600 MG, DAILY
     Route: 064
  4. NEVIRAPINE [Concomitant]
     Indication: HIV INFECTION
     Dosage: 400 MG, DAILY
     Route: 064
  5. METHADONE [Concomitant]
     Indication: PRODUCT USED FOR UNKNOWN INDICATION
     Dosage: 90 MG, DAILY
     Route: 064
  6. PENTAMIDINE [Concomitant]
     Indication: PRODUCT USED FOR UNKNOWN INDICATION
     Dosage: 90 MG, DAILY
     Route: 064
  7. SEPTRA [Concomitant]
     Indication: PRODUCT USED FOR UNKNOWN INDICATION
     Dosage: UNK
     Route: 064

REACTIONS (10)
  - Foetal exposure during pregnancy [Unknown]
  - Craniosynostosis [Unknown]
  - Convulsion neonatal [Unknown]
  - Pneumonia pneumococcal [Unknown]
  - Bacteraemia [Unknown]
  - Grand mal convulsion [Unknown]
  - Cerebral dysgenesis [Unknown]
  - Deafness bilateral [Unknown]
  - Dysmorphism [Unknown]
  - Limb malformation [Unknown]
